FAERS Safety Report 15249700 (Version 3)
Quarter: 2018Q4

REPORT INFORMATION
  Report Type: Report from Study
  Country: JP (occurrence: JP)
  Receive Date: 20180807
  Receipt Date: 20181001
  Transmission Date: 20190204
  Serious: Yes (Disabling, Other)
  Sender: FDA-Public Use
  Company Number: JP-BEH-2018093394

PATIENT
  Age: 71 Year
  Sex: Female
  Weight: 58.5 kg

DRUGS (19)
  1. TRANEXAMIC ACID. [Concomitant]
     Active Substance: TRANEXAMIC ACID
     Indication: HAEMOSTASIS
     Dosage: UNK
     Route: 065
     Dates: start: 20180420, end: 20180423
  2. NITOROL [Concomitant]
     Active Substance: ISOSORBIDE DINITRATE
     Indication: HYPERTENSION
     Dosage: UNK
     Route: 065
     Dates: start: 20180421, end: 20180425
  3. BERIPLEX P/N [Suspect]
     Active Substance: COAGULATION FACTOR IX HUMAN\COAGULATION FACTOR VII HUMAN\COAGULATION FACTOR X HUMAN\PROTEIN C\PROTEIN S HUMAN\PROTHROMBIN
     Dosage: UNK
     Route: 042
  4. AMLODIPINE [Concomitant]
     Active Substance: AMLODIPINE BESYLATE
     Dosage: UNK
     Route: 048
     Dates: start: 20180425
  5. BERIPLEX P/N [Suspect]
     Active Substance: COAGULATION FACTOR IX HUMAN\COAGULATION FACTOR VII HUMAN\COAGULATION FACTOR X HUMAN\PROTEIN C\PROTEIN S HUMAN\PROTHROMBIN
     Indication: SURGERY
     Dosage: UNK
     Route: 042
  6. GLYCEREB [Concomitant]
     Active Substance: FRUCTOSE\GLYCERIN
     Indication: BRAIN OEDEMA
     Dosage: UNK
     Route: 065
     Dates: start: 20180420, end: 20180427
  7. LANSOPRAZOLE. [Concomitant]
     Active Substance: LANSOPRAZOLE
     Indication: PROPHYLAXIS AGAINST GASTROINTESTINAL ULCER
     Dosage: UNK
     Route: 048
     Dates: start: 20180425
  8. BISOPROLOL [Concomitant]
     Active Substance: BISOPROLOL
     Dosage: UNK
     Route: 065
     Dates: start: 20180425
  9. TANATRIL [Concomitant]
     Active Substance: IMIDAPRIL
     Dosage: UNK
     Route: 048
     Dates: start: 20180502, end: 20180607
  10. WARFARIN [Concomitant]
     Active Substance: WARFARIN
     Indication: ATRIAL FIBRILLATION
     Dosage: UNK
     Route: 048
     Dates: end: 20180120
  11. CEFAZOLIN SODIUM. [Concomitant]
     Active Substance: CEFAZOLIN SODIUM
     Indication: INFECTION PROPHYLAXIS
     Dosage: UNK
     Route: 065
     Dates: start: 20180420, end: 20180428
  12. GLYCEREB [Concomitant]
     Active Substance: FRUCTOSE\GLYCERIN
     Indication: PROPHYLAXIS
  13. DOXAZOSIN [Concomitant]
     Active Substance: DOXAZOSIN\DOXAZOSIN MESYLATE
     Dosage: UNK
     Route: 048
     Dates: start: 20180502, end: 20180607
  14. KAYTWO [Concomitant]
     Active Substance: MENATETRENONE
     Indication: PROCOAGULANT THERAPY
     Dosage: 20 MG, QD
     Route: 065
     Dates: start: 20180420, end: 20180420
  15. CARBAZOCHROME SODIUM SULFONATE [Concomitant]
     Active Substance: CARBAZOCHROME SODIUM SULFONATE
     Indication: HAEMOSTASIS
     Dosage: UNK
     Route: 065
     Dates: start: 20180420, end: 20180423
  16. NICARDIPINE HYDROCHLORIDE. [Concomitant]
     Active Substance: NICARDIPINE HYDROCHLORIDE
     Indication: HYPERTENSION
     Dosage: UNK
     Route: 065
     Dates: start: 20180420, end: 20180425
  17. METOCLOPRAMIDE. [Concomitant]
     Active Substance: METOCLOPRAMIDE
     Indication: NAUSEA
     Dosage: UNK
     Route: 065
     Dates: start: 20180420, end: 20180423
  18. BERIPLEX P/N [Suspect]
     Active Substance: COAGULATION FACTOR IX HUMAN\COAGULATION FACTOR VII HUMAN\COAGULATION FACTOR X HUMAN\PROTEIN C\PROTEIN S HUMAN\PROTHROMBIN
     Indication: EMERGENCY CARE
     Dosage: 1500 IU, TOT
     Route: 042
     Dates: start: 20180420
  19. WARFARIN [Concomitant]
     Active Substance: WARFARIN
     Indication: PROPHYLAXIS

REACTIONS (4)
  - Extremity necrosis [Recovered/Resolved with Sequelae]
  - Pallor [Recovered/Resolved with Sequelae]
  - Pallor [Recovered/Resolved with Sequelae]
  - Arterial occlusive disease [Recovered/Resolved with Sequelae]

NARRATIVE: CASE EVENT DATE: 20180508
